FAERS Safety Report 19362564 (Version 1)
Quarter: 2021Q2

REPORT INFORMATION
  Report Type: Spontaneous
  Country: US (occurrence: US)
  Receive Date: 20210601
  Receipt Date: 20210601
  Transmission Date: 20210717
  Serious: No
  Sender: FDA-Public Use
  Company Number: US-ABBVIE-21K-163-3872714-00

PATIENT
  Age: 41 Year
  Sex: Female
  Weight: 48.12 kg

DRUGS (2)
  1. ORIAHNN [Suspect]
     Active Substance: ELAGOLIX SODIUM\ESTRADIOL\NORETHINDRONE
     Indication: UTERINE LEIOMYOMA
     Dosage: ONE IN THE MORNING
     Route: 048
     Dates: start: 202104
  2. ORIAHNN [Suspect]
     Active Substance: ELAGOLIX SODIUM\ESTRADIOL\NORETHINDRONE
     Indication: UTERINE LEIOMYOMA
     Dosage: ONE IN THE EVENING
     Route: 048
     Dates: start: 202104

REACTIONS (1)
  - Abnormal uterine bleeding [Recovering/Resolving]

NARRATIVE: CASE EVENT DATE: 20210420
